FAERS Safety Report 4556129-0 (Version None)
Quarter: 2005Q1

REPORT INFORMATION
  Report Type: 
  Country: None (occurrence: None)
  Receive Date: 20050119
  Receipt Date: 20050107
  Transmission Date: 20050727
  Serious: Yes (Hospitalization)
  Sender: FDA-Public Use
  Company Number: CN-BRISTOL-MYERS SQUIBB COMPANY-12817201

PATIENT
  Age: 15 Year
  Sex: Male

DRUGS (1)
  1. CEFZIL [Suspect]
     Indication: DIARRHOEA
     Route: 048
     Dates: start: 20041228, end: 20041228

REACTIONS (1)
  - BLOOD URINE PRESENT [None]
